FAERS Safety Report 14663322 (Version 2)
Quarter: 2018Q2

REPORT INFORMATION
  Report Type: Spontaneous
  Country: US (occurrence: US)
  Receive Date: 20180321
  Receipt Date: 20180611
  Transmission Date: 20180711
  Serious: Yes (Other)
  Sender: FDA-Public Use
  Company Number: US-BAYER-2018-054835

PATIENT
  Age: 28 Year
  Sex: Female

DRUGS (4)
  1. SKYLA [Suspect]
     Active Substance: LEVONORGESTREL
     Indication: CONTRACEPTION
     Dosage: 14 MCG/24HR, CONT
     Route: 015
     Dates: start: 20180220, end: 20180327
  2. CYTOTEC [Concomitant]
     Active Substance: MISOPROSTOL
     Dosage: ONE EVENING BEFORE INSERTION ATTEMPT
     Route: 048
     Dates: start: 20180220, end: 20180221
  3. ADVAIR HFA [Concomitant]
     Active Substance: FLUTICASONE PROPIONATE\SALMETEROL XINAFOATE
  4. CYTOTEC [Concomitant]
     Active Substance: MISOPROSTOL
     Dosage: ONE EVENING BEFORE INSERTION ATTEMPT
     Route: 048
     Dates: start: 20180219

REACTIONS (3)
  - Abdominal pain [None]
  - Device dislocation [Recovered/Resolved]
  - Dyspareunia [None]

NARRATIVE: CASE EVENT DATE: 2018
